FAERS Safety Report 17742899 (Version 4)
Quarter: 2020Q2

REPORT INFORMATION
  Report Type: Spontaneous
  Country: CA (occurrence: CA)
  Receive Date: 20200505
  Receipt Date: 20200619
  Transmission Date: 20200714
  Serious: Yes (Other)
  Sender: FDA-Public Use
  Company Number: CA-CELLTRION INC.-2020CA019224

PATIENT

DRUGS (11)
  1. INFLECTRA [Suspect]
     Active Substance: INFLIXIMAB-DYYB
     Indication: COLITIS ULCERATIVE
     Dosage: 10 MG/KG, UNK
     Route: 042
     Dates: start: 20200122, end: 20200122
  2. INFLECTRA [Suspect]
     Active Substance: INFLIXIMAB-DYYB
     Dosage: 700 MG/KG, 2, 6 THEN EVERY 8 WEEKS
     Route: 042
     Dates: start: 20200303
  3. INFLECTRA [Suspect]
     Active Substance: INFLIXIMAB-DYYB
     Dosage: 500 MG/KG, 2, 6 THEN EVERY 8 WEEKS
     Route: 042
     Dates: start: 20200203
  4. INFLECTRA [Suspect]
     Active Substance: INFLIXIMAB-DYYB
     Dosage: 500 MG/KG, 2, 6 THEN EVERY 8 WEEKS
     Route: 042
     Dates: start: 20200203
  5. INFLECTRA [Suspect]
     Active Substance: INFLIXIMAB-DYYB
     Dosage: 700 MG/KG, 2, 6 THEN EVERY 8 WEEKS
     Route: 042
     Dates: start: 20200427
  6. INFLECTRA [Suspect]
     Active Substance: INFLIXIMAB-DYYB
     Dosage: 700 MG WEEK 6, EVERY 8 WEEKS
     Route: 042
     Dates: start: 20200427
  7. PREDNISONE. [Concomitant]
     Active Substance: PREDNISONE
     Dosage: UNK
     Route: 065
  8. INFLECTRA [Suspect]
     Active Substance: INFLIXIMAB-DYYB
     Dosage: 500 MG/KG, 2, 6 THEN EVERY 8 WEEKS
     Route: 042
     Dates: start: 20200203, end: 20200203
  9. PREDNISONE. [Concomitant]
     Active Substance: PREDNISONE
     Dosage: TAPERING
     Route: 065
  10. INFLECTRA [Suspect]
     Active Substance: INFLIXIMAB-DYYB
     Dosage: 700 MG/KG, 2, 6 THEN EVERY 8 WEEKS
     Route: 042
     Dates: start: 20200303
  11. INFLECTRA [Suspect]
     Active Substance: INFLIXIMAB-DYYB
     Dosage: 10MG/KG EVERY 6 WEEKS
     Route: 042
     Dates: start: 20200612

REACTIONS (3)
  - Condition aggravated [Unknown]
  - Product prescribing error [Unknown]
  - Off label use [Unknown]

NARRATIVE: CASE EVENT DATE: 20200203
